FAERS Safety Report 9283225 (Version 1)
Quarter: 2013Q2

REPORT INFORMATION
  Report Type: Spontaneous
  Country: US (occurrence: US)
  Receive Date: 20130510
  Receipt Date: 20130510
  Transmission Date: 20140414
  Serious: No
  Sender: FDA-Public Use
  Company Number: US-GLAXOSMITHKLINE-A0989542A

PATIENT
  Age: 57 Year
  Sex: Female

DRUGS (6)
  1. TYKERB [Suspect]
     Indication: BREAST CANCER
     Dosage: 1250MG PER DAY
     Route: 048
     Dates: start: 20110204
  2. XELODA [Suspect]
     Dosage: 3TAB TWICE PER DAY
     Dates: start: 2011
  3. UNKNOWN MEDICATION [Concomitant]
  4. PAIN KILLERS [Concomitant]
  5. LOSARTAN [Concomitant]
  6. CHEMOTHERAPY [Concomitant]

REACTIONS (12)
  - Drug interaction [Unknown]
  - Diarrhoea [Unknown]
  - Nausea [Unknown]
  - Weight decreased [Unknown]
  - Decreased appetite [Unknown]
  - Fatigue [Unknown]
  - Pruritus [Not Recovered/Not Resolved]
  - Rash [Not Recovered/Not Resolved]
  - Blister [Recovered/Resolved]
  - Blood blister [Recovered/Resolved]
  - Stomatitis [Unknown]
  - Dizziness [Unknown]
